FAERS Safety Report 6474727-4 (Version None)
Quarter: 2009Q4

REPORT INFORMATION
  Report Type: 
  Country: None (occurrence: None)
  Receive Date: 20091204
  Receipt Date: 20091127
  Transmission Date: 20100525
  Serious: Yes (Disabling, Other)
  Sender: FDA-Public Use
  Company Number: B0602551A

PATIENT
  Sex: Male

DRUGS (6)
  1. SERETIDE DISKUS [Suspect]
     Indication: CHRONIC OBSTRUCTIVE PULMONARY DISEASE
     Dosage: 1PUFF TWICE PER DAY
     Route: 055
     Dates: start: 20060101
  2. BIPRETERAX [Concomitant]
     Dosage: 1UNIT IN THE MORNING
     Route: 065
  3. VERAPAMIL [Concomitant]
     Dosage: 240MG PER DAY
     Route: 048
  4. ELISOR [Concomitant]
     Dosage: 20MG PER DAY
     Route: 048
  5. PIROXICAM [Concomitant]
     Route: 065
  6. SPIRIVA [Concomitant]
     Route: 055

REACTIONS (2)
  - BACK PAIN [None]
  - OSTEONECROSIS [None]
